FAERS Safety Report 9163096 (Version 2)
Quarter: 2013Q1

REPORT INFORMATION
  Report Type: Spontaneous
  Country: US (occurrence: None)
  Receive Date: 20130225
  Receipt Date: 20130227
  Transmission Date: 20140127
  Serious: Yes (Hospitalization, Other)
  Sender: FDA-Public Use
  Company Number: AUR-APL-2013-01511

PATIENT
  Age: 77 Year
  Sex: Female
  Weight: 56 kg

DRUGS (5)
  1. CIPROFLOXACIN (CIPROFLOXACIN) [Suspect]
     Indication: UROSEPSIS
     Route: 048
     Dates: start: 20130125, end: 20130129
  2. CODEINE (CODEINE) [Concomitant]
  3. ENOXAPARIN (ENOXAPARIN) [Concomitant]
  4. MEROPENEM (MEROPENEM) [Concomitant]
  5. PARACETAMOL (PARACETAMOL) [Concomitant]

REACTIONS (1)
  - Renal failure [None]
